FAERS Safety Report 9754821 (Version 1)
Quarter: 2013Q4

REPORT INFORMATION
  Report Type: Spontaneous
  Country: US (occurrence: US)
  Receive Date: 20131213
  Receipt Date: 20131213
  Transmission Date: 20140711
  Serious: No
  Sender: FDA-Public Use
  Company Number: US-GLAXOSMITHKLINE-A1007011A

PATIENT
  Age: 52 Year
  Sex: Female

DRUGS (6)
  1. NICODERM CQ CLEAR 21MG [Suspect]
     Indication: EX-TOBACCO USER
     Dates: start: 20121226
  2. VALIUM [Concomitant]
  3. ZOLPIDEM [Concomitant]
  4. PHENTERMINE [Concomitant]
  5. AMLODIPINE BESYLATE [Concomitant]
  6. DIOVAN [Concomitant]

REACTIONS (8)
  - Blood pressure increased [Unknown]
  - Heart rate increased [Recovered/Resolved]
  - Feeling abnormal [Recovered/Resolved]
  - Tension [Recovered/Resolved]
  - Feeling abnormal [Recovered/Resolved]
  - Insomnia [Recovered/Resolved]
  - Palpitations [Recovered/Resolved]
  - Product quality issue [Unknown]
